FAERS Safety Report 18346998 (Version 1)
Quarter: 2020Q4

REPORT INFORMATION
  Report Type: Spontaneous
  Country: FR (occurrence: FR)
  Receive Date: 20201006
  Receipt Date: 20201006
  Transmission Date: 20210114
  Serious: Yes (Life-Threatening, Other)
  Sender: FDA-Public Use
  Company Number: FR-AUROBINDO-AUR-APL-2020-050414

PATIENT
  Age: 60 Year
  Sex: Female

DRUGS (3)
  1. PARACETAMOL [Suspect]
     Active Substance: ACETAMINOPHEN
     Indication: POISONING
     Dosage: 28 GRAM, ONCE A DAY
     Route: 048
     Dates: start: 20200618, end: 20200618
  2. XANAX [Concomitant]
     Active Substance: ALPRAZOLAM
     Indication: POISONING
     Dosage: UNK
     Route: 048
     Dates: start: 20200618, end: 20200618
  3. LORMETAZEPAM ARROW [Concomitant]
     Active Substance: LORMETAZEPAM
     Indication: POISONING
     Dosage: UNK
     Route: 048
     Dates: start: 20200618, end: 20200618

REACTIONS (3)
  - Hepatocellular injury [Recovered/Resolved]
  - Encephalopathy [Recovered/Resolved]
  - Acute kidney injury [Recovered/Resolved]

NARRATIVE: CASE EVENT DATE: 20200619
